FAERS Safety Report 25651309 (Version 1)
Quarter: 2025Q3

REPORT INFORMATION
  Report Type: Spontaneous
  Country: GB (occurrence: GB)
  Receive Date: 20250806
  Receipt Date: 20250806
  Transmission Date: 20251020
  Serious: Yes (Hospitalization, Other)
  Sender: DR REDDYS
  Company Number: None

PATIENT
  Age: 79 Year
  Sex: Female

DRUGS (1)
  1. ZOLEDRONIC ACID [Suspect]
     Active Substance: ZOLEDRONIC ACID
     Indication: Osteopenia
     Dates: start: 20250407

REACTIONS (6)
  - Influenza [Recovered/Resolved with Sequelae]
  - Diplopia [Unknown]
  - Nerve compression [Unknown]
  - Diarrhoea [Unknown]
  - Vomiting [Unknown]
  - Eye inflammation [Unknown]

NARRATIVE: CASE EVENT DATE: 20250408
